FAERS Safety Report 10306981 (Version 3)
Quarter: 2014Q3

REPORT INFORMATION
  Report Type: Spontaneous
  Country: JP (occurrence: JP)
  Receive Date: 20140715
  Receipt Date: 20140725
  Transmission Date: 20150326
  Serious: Yes (Hospitalization, Disabling, Other)
  Sender: FDA-Public Use
  Company Number: JP-AMGEN INC.-JPNSP2014046759

PATIENT
  Age: 65 Year
  Sex: Female
  Weight: 47 kg

DRUGS (7)
  1. TRAMCET [Concomitant]
     Active Substance: ACETAMINOPHEN\TRAMADOL
     Indication: ARTHRALGIA
     Dosage: 2 DF, 4X/DAY
     Route: 048
     Dates: start: 20120410, end: 20120810
  2. ENBREL [Suspect]
     Active Substance: ETANERCEPT
     Indication: RHEUMATOID ARTHRITIS
     Dosage: 25 MG, WEEKLY
     Route: 058
     Dates: start: 20120511, end: 201205
  3. METHOTREXATE [Concomitant]
     Active Substance: METHOTREXATE
     Indication: RHEUMATOID ARTHRITIS
     Dosage: 10 MG, WEEKLY
     Route: 048
     Dates: start: 1999, end: 201205
  4. METHOTREXATE [Concomitant]
     Active Substance: METHOTREXATE
     Dosage: 10 MG, WEEKLY
     Route: 048
     Dates: start: 201401, end: 201404
  5. METHOTREXATE [Concomitant]
     Active Substance: METHOTREXATE
     Dosage: 12 MG, WEEKLY
     Route: 048
     Dates: start: 20120525, end: 201301
  6. FOLIAMIN [Concomitant]
     Active Substance: FOLIC ACID
     Indication: PROPHYLAXIS
     Dosage: 5 MG, WEEKLY
     Route: 048
     Dates: start: 1999, end: 201404
  7. ENBREL [Suspect]
     Active Substance: ETANERCEPT
     Dosage: 25 MG, 2X/WEEK
     Route: 058
     Dates: start: 20120525, end: 201404

REACTIONS (3)
  - Deafness unilateral [Recovering/Resolving]
  - Iritis [Recovering/Resolving]
  - Cogan^s syndrome [Unknown]

NARRATIVE: CASE EVENT DATE: 201308
